FAERS Safety Report 9484888 (Version 2)
Quarter: 2013Q3

REPORT INFORMATION
  Report Type: Spontaneous
  Country: US (occurrence: US)
  Receive Date: 20130828
  Receipt Date: 20130828
  Transmission Date: 20140515
  Serious: No
  Sender: FDA-Public Use
  Company Number: US-ABBOTT-13P-163-1101247-00

PATIENT
  Age: 58 Year
  Sex: Male
  Weight: 93.07 kg

DRUGS (12)
  1. ANDROGEL [Suspect]
     Indication: BLOOD TESTOSTERONE DECREASED
     Route: 061
     Dates: start: 201305
  2. HYDROCHLOROTHIAZIDE [Concomitant]
     Indication: HYPERTENSION
  3. METOPROLOL [Concomitant]
     Indication: HYPERTENSION
  4. TRANXENE [Concomitant]
     Indication: ANXIETY
  5. EFFEXOR XR [Concomitant]
     Indication: DEPRESSION
  6. TAMSULOSIN [Concomitant]
     Indication: BENIGN PROSTATIC HYPERPLASIA
  7. BABY ASPIRIN [Concomitant]
     Indication: ANTICOAGULANT THERAPY
  8. CALTRATE [Concomitant]
     Indication: MINERAL SUPPLEMENTATION
  9. ATORVASTATIN [Concomitant]
     Indication: BLOOD CHOLESTEROL INCREASED
  10. FISH OIL [Concomitant]
     Indication: BLOOD TRIGLYCERIDES INCREASED
  11. ZOLPIDEM [Concomitant]
     Indication: INSOMNIA
  12. DOXEPIN [Concomitant]
     Indication: UPPER-AIRWAY COUGH SYNDROME

REACTIONS (4)
  - Muscle spasms [Recovered/Resolved]
  - Arrhythmia [Recovered/Resolved]
  - Pain in extremity [Recovered/Resolved]
  - Inappropriate schedule of drug administration [Unknown]
